FAERS Safety Report 26001764 (Version 2)
Quarter: 2025Q4

REPORT INFORMATION
  Report Type: Spontaneous
  Country: CA (occurrence: CA)
  Receive Date: 20251105
  Receipt Date: 20251107
  Transmission Date: 20260117
  Serious: No
  Sender: NOVARTIS
  Company Number: EU-002147023-NVSC2025CA168377

PATIENT
  Age: 2 Week
  Sex: Male

DRUGS (4)
  1. TRAMETINIB [Suspect]
     Active Substance: TRAMETINIB
     Indication: Noonan syndrome
     Dosage: 0.02 MG/KG, QD
     Route: 065
  2. PROPRANOLOL [Concomitant]
     Active Substance: PROPRANOLOL HYDROCHLORIDE
     Indication: Noonan syndrome
     Dosage: 8 MG/KG, QD
     Route: 048
  3. AMIODARONE [Concomitant]
     Active Substance: AMIODARONE
     Indication: Noonan syndrome
     Dosage: UNK
     Route: 042
  4. AMIODARONE [Concomitant]
     Active Substance: AMIODARONE
     Indication: Ventricular arrhythmia

REACTIONS (4)
  - Skin erosion [Recovering/Resolving]
  - Skin ulcer [Recovering/Resolving]
  - Hepatic enzyme increased [Recovered/Resolved]
  - Off label use [Unknown]
